FAERS Safety Report 9831732 (Version 2)
Quarter: 2014Q1

REPORT INFORMATION
  Report Type: Spontaneous
  Country: US (occurrence: US)
  Receive Date: 20140121
  Receipt Date: 20140121
  Transmission Date: 20141002
  Serious: Yes (Other)
  Sender: FDA-Public Use
  Company Number: US-JNJFOC-20131212966

PATIENT
  Age: 60 Year
  Sex: Female
  Weight: 47.17 kg

DRUGS (6)
  1. SIMPONI [Suspect]
     Indication: ANKYLOSING SPONDYLITIS
     Dosage: ONLY 1 DOSE
     Route: 058
     Dates: start: 20131213
  2. OPANA ER [Suspect]
     Indication: MUSCULOSKELETAL PAIN
     Dosage: DATES OF THERAPY: CHRONICALLY
     Route: 065
  3. PERCOCET [Suspect]
     Indication: MUSCULOSKELETAL PAIN
     Dosage: 5/325 MG??DATES OF THERAPY: CHRONICALLY
     Route: 065
  4. SOMA [Concomitant]
     Indication: PAIN
     Route: 065
  5. PLAQUENIL [Concomitant]
     Indication: ARTHRITIS
     Route: 065
  6. FORTEO [Concomitant]
     Indication: OSTEOPOROSIS
     Dosage: 600 MG/ 2.4ML
     Route: 065
     Dates: start: 201301

REACTIONS (7)
  - Hypertension [Recovered/Resolved]
  - Fatigue [Recovered/Resolved]
  - Dyspnoea [Recovered/Resolved]
  - Diarrhoea [Recovered/Resolved]
  - Oropharyngeal pain [Recovered/Resolved]
  - Myalgia [Recovered/Resolved]
  - Vomiting [Unknown]
